FAERS Safety Report 14609478 (Version 1)
Quarter: 2018Q1

REPORT INFORMATION
  Report Type: Spontaneous
  Country: US (occurrence: US)
  Receive Date: 20180307
  Receipt Date: 20180307
  Transmission Date: 20180509
  Serious: No
  Sender: FDA-Public Use
  Company Number: US-ALLERGAN-1707859US

PATIENT
  Age: 6 Decade
  Sex: Female

DRUGS (4)
  1. VIIBRYD [Suspect]
     Active Substance: VILAZODONE HYDROCHLORIDE
     Indication: MIGRAINE
     Dosage: 10 MG, QD
     Route: 048
     Dates: start: 20170212, end: 20170219
  2. IBUPROFEN. [Concomitant]
     Active Substance: IBUPROFEN
     Indication: ARTHRALGIA
     Dosage: UNK UNK, PRN
     Route: 048
  3. VIIBRYD [Suspect]
     Active Substance: VILAZODONE HYDROCHLORIDE
     Indication: CHRONIC FATIGUE SYNDROME
  4. ASPIRIN. [Concomitant]
     Active Substance: ASPIRIN
     Indication: PRODUCT USED FOR UNKNOWN INDICATION
     Dosage: UNK UNK, QD, PRN
     Route: 048

REACTIONS (24)
  - Gait inability [Recovered/Resolved]
  - Off label use [Unknown]
  - Palpitations [Unknown]
  - Depression [Unknown]
  - Feeling cold [Not Recovered/Not Resolved]
  - Muscle spasms [Unknown]
  - Agitation [Unknown]
  - Irritability [Unknown]
  - Suicidal ideation [Unknown]
  - Crying [Unknown]
  - Body temperature abnormal [Unknown]
  - Chest pain [Recovered/Resolved]
  - Asthenia [Unknown]
  - Personality change [Unknown]
  - Pain in extremity [Unknown]
  - Aggression [Unknown]
  - Therapeutic response unexpected [Unknown]
  - Arthralgia [Recovered/Resolved]
  - Dizziness [Unknown]
  - Anger [Unknown]
  - Social avoidant behaviour [Not Recovered/Not Resolved]
  - Vertigo [Unknown]
  - Mood altered [Not Recovered/Not Resolved]
  - Hyperhidrosis [Unknown]

NARRATIVE: CASE EVENT DATE: 201702
